FAERS Safety Report 8135155-9 (Version None)
Quarter: 2012Q1

REPORT INFORMATION
  Report Type: 
  Country: None (occurrence: None)
  Receive Date: 20120210
  Receipt Date: 20120130
  Transmission Date: 20120608
  Serious: Yes (Hospitalization)
  Sender: FDA-Public Use
  Company Number: DIC30805-US-11-002

PATIENT
  Age: 69 Year
  Sex: Female
  Weight: 74.4 kg

DRUGS (9)
  1. DICLOFENAC NANOFORMULATION (DICLOFENAC) (CAPSULES) (DICLOFENAC) [Suspect]
     Indication: OSTEOARTHRITIS
     Dosage: 105 MG (35 MG, 3 IN 1 D), ORAL
     Route: 048
     Dates: start: 20111103, end: 20111201
  2. ASPIRIN (ACETYLSALICYLIC ACID) (ACETYLSALICYCLIC ACID) [Concomitant]
  3. CRANBERRY (VACCINIUM MACROCARPON) (TABLETS) (VACCINIUM MACROCARPON) [Concomitant]
  4. LISINOPRIL [Concomitant]
  5. METOPROLOL SUCCINATE [Concomitant]
  6. IMDUR [Concomitant]
  7. NITROGLYCERINE (GLYCERYL TRINITRATE) (GLYCERYL TRINITRATE) [Concomitant]
  8. HYDROCHLOROTHIAZIDE [Concomitant]
  9. TUMS (CALCIUM CARBONATE) (TABLETS) (CALCIUM CARBONATE) [Concomitant]

REACTIONS (14)
  - BLOOD PRESSURE INCREASED [None]
  - NO THERAPEUTIC RESPONSE [None]
  - CREATININE RENAL CLEARANCE DECREASED [None]
  - CAROTID ARTERIOSCLEROSIS [None]
  - SPEECH DISORDER [None]
  - CAROTID ARTERY STENOSIS [None]
  - DIZZINESS [None]
  - CONFUSIONAL STATE [None]
  - DYSPNOEA [None]
  - LOW DENSITY LIPOPROTEIN INCREASED [None]
  - ALANINE AMINOTRANSFERASE INCREASED [None]
  - NON-CARDIAC CHEST PAIN [None]
  - ABASIA [None]
  - HIGH DENSITY LIPOPROTEIN DECREASED [None]
